FAERS Safety Report 18177616 (Version 1)
Quarter: 2020Q3

REPORT INFORMATION
  Report Type: Spontaneous
  Country: US (occurrence: US)
  Receive Date: 20200820
  Receipt Date: 20200820
  Transmission Date: 20201103
  Serious: Yes (Life-Threatening, Hospitalization)
  Sender: FDA-Public Use
  Company Number: US-MYLANLABS-2020M1072542

PATIENT
  Age: 16 Year
  Sex: Male
  Weight: 56.7 kg

DRUGS (6)
  1. EPINEPHRINE. [Suspect]
     Active Substance: EPINEPHRINE
     Indication: ANAPHYLACTIC REACTION
  2. EPINEPHRINE. [Suspect]
     Active Substance: EPINEPHRINE
     Indication: ANAPHYLACTIC REACTION
  3. EPINEPHRINE. [Suspect]
     Active Substance: EPINEPHRINE
     Indication: ALLERGY TO ARTHROPOD STING
     Dosage: 1:1000; 0.3 SHOULD HAVE BEEN ADMINISTERED VIA THE IM ROUTE; INSTEAD ADMINISTERED VIA THE IV ROUTE
     Route: 030
  4. BENADRYL [Concomitant]
     Active Substance: DIPHENHYDRAMINE HYDROCHLORIDE
     Indication: ANAPHYLACTIC REACTION
  5. EPINEPHRINE. [Suspect]
     Active Substance: EPINEPHRINE
     Indication: ALLERGY TO ARTHROPOD STING
     Dosage: 0.3 MILLIGRAM 1:1000 (WHICH IS THE IM DOSE)
     Route: 042
  6. BENADRYL [Concomitant]
     Active Substance: DIPHENHYDRAMINE HYDROCHLORIDE
     Indication: ALLERGY TO ARTHROPOD BITE
     Dosage: 50 MILLIGRAM
     Route: 042

REACTIONS (9)
  - Pulmonary oedema [Recovered/Resolved]
  - Hypoxia [Recovered/Resolved]
  - Hypotension [Recovered/Resolved]
  - Tachycardia [Recovered/Resolved]
  - Diastolic dysfunction [Recovered/Resolved]
  - Accidental overdose [Recovered/Resolved]
  - Incorrect route of product administration [Recovered/Resolved]
  - Cardiogenic shock [Recovered/Resolved]
  - Myocardial ischaemia [Recovered/Resolved]
